FAERS Safety Report 7478773-3 (Version None)
Quarter: 2011Q2

REPORT INFORMATION
  Report Type: 
  Country: None (occurrence: None)
  Receive Date: 20110513
  Receipt Date: 20110509
  Transmission Date: 20111010
  Serious: Yes (Life-Threatening, Hospitalization, Other)
  Sender: FDA-Public Use
  Company Number: US-ROCHE-716509

PATIENT
  Sex: Female
  Weight: 83 kg

DRUGS (12)
  1. TRAMADOL HCL [Concomitant]
     Indication: PAIN
     Route: 048
  2. WELLBUTRIN [Concomitant]
     Indication: DEPRESSION
  3. ZANTAC [Concomitant]
  4. OMEPRAZOLE [Concomitant]
     Route: 048
  5. COPEGUS [Suspect]
     Route: 048
     Dates: start: 20110103
  6. ATENOLOL [Concomitant]
     Route: 048
  7. PEGASYS [Suspect]
     Route: 058
     Dates: start: 20110103
  8. ASPIRIN [Concomitant]
     Route: 048
  9. CALAN [Concomitant]
     Route: 048
  10. COPEGUS [Suspect]
     Indication: HEPATITIS C
     Route: 048
     Dates: start: 20100123, end: 20100624
  11. AMITRIPTYLINE HCL [Concomitant]
     Route: 048
  12. PEGASYS [Suspect]
     Indication: HEPATITIS C
     Dosage: FORM: INJECTION
     Route: 058
     Dates: start: 20100123, end: 20100624

REACTIONS (6)
  - STRESS CARDIOMYOPATHY [None]
  - IRRITABILITY [None]
  - ARTERIOSCLEROSIS [None]
  - BLOOD CHOLESTEROL ABNORMAL [None]
  - ACUTE MYOCARDIAL INFARCTION [None]
  - HOMICIDAL IDEATION [None]
